FAERS Safety Report 5331355-1 (Version None)
Quarter: 2007Q2

REPORT INFORMATION
  Report Type: 
  Country: None (occurrence: None)
  Receive Date: 20070522
  Receipt Date: 20070509
  Transmission Date: 20071010
  Serious: Yes (Hospitalization)
  Sender: FDA-Public Use
  Company Number: US-ELI_LILLY_AND_COMPANY-US200705003022

PATIENT
  Sex: Female

DRUGS (3)
  1. FORTEO [Suspect]
     Indication: OSTEOPOROSIS
     Dates: start: 20061001, end: 20070109
  2. FORTEO [Suspect]
     Dates: start: 20070428
  3. COUMADIN [Concomitant]

REACTIONS (1)
  - LABORATORY TEST ABNORMAL [None]
